FAERS Safety Report 9479345 (Version 2)
Quarter: 2013Q3

REPORT INFORMATION
  Report Type: Spontaneous
  Country: FR (occurrence: JP)
  Receive Date: 20130827
  Receipt Date: 20130827
  Transmission Date: 20140515
  Serious: Yes (Other)
  Sender: FDA-Public Use
  Company Number: JP-FRI-1000047769

PATIENT
  Age: 89 Year
  Sex: Female

DRUGS (7)
  1. MILNACIPRAN [Suspect]
     Indication: DEPRESSION
     Dosage: 25 MG
     Route: 048
  2. TERIPARATIDE ACETATE [Suspect]
     Indication: OSTEOPOROSIS
     Dosage: 56.5 MCG WEEKLY
     Route: 058
     Dates: start: 20130621, end: 20130719
  3. NEXIUM [Concomitant]
  4. NORVASC [Concomitant]
  5. OLMETEC [Concomitant]
  6. SERENAL [Concomitant]
  7. DOGMATYL [Concomitant]

REACTIONS (2)
  - Convulsion [Recovered/Resolved]
  - Feeling abnormal [Recovered/Resolved]
